FAERS Safety Report 16606899 (Version 1)
Quarter: 2019Q3

REPORT INFORMATION
  Report Type: Spontaneous
  Country: UY (occurrence: UY)
  Receive Date: 20190722
  Receipt Date: 20190722
  Transmission Date: 20191004
  Serious: Yes (Other)
  Sender: FDA-Public Use
  Company Number: UY-ABBVIE-19K-168-2857730-00

PATIENT
  Age: 13 Year

DRUGS (1)
  1. HUMIRA [Suspect]
     Active Substance: ADALIMUMAB
     Indication: JUVENILE IDIOPATHIC ARTHRITIS
     Route: 058

REACTIONS (5)
  - Bone marrow oedema [Unknown]
  - Back pain [Unknown]
  - Metaplasia [Unknown]
  - Inflammation [Unknown]
  - Bone erosion [Unknown]

NARRATIVE: CASE EVENT DATE: 201906
